FAERS Safety Report 20997631 (Version 1)
Quarter: 2022Q2

REPORT INFORMATION
  Report Type: Spontaneous
  Country: DE (occurrence: DE)
  Receive Date: 20220623
  Receipt Date: 20220623
  Transmission Date: 20220721
  Serious: Yes (Other)
  Sender: FDA-Public Use
  Company Number: None

PATIENT
  Age: 43 Year
  Sex: Female

DRUGS (2)
  1. MIRTAZAPINE [Suspect]
     Active Substance: MIRTAZAPINE
     Indication: Product used for unknown indication
     Dosage: UNIT DOSE: 30 MG, FREQUENCY : 1 DAYS
     Route: 048
     Dates: start: 20210801, end: 20220302
  2. SERTRALINE HYDROCHLORIDE [Concomitant]
     Active Substance: SERTRALINE HYDROCHLORIDE
     Indication: Product used for unknown indication
     Dosage: UNIT DOSE: 150 MG, FREQUENCY : 1 DAYS
     Route: 048
     Dates: start: 20201201, end: 20220302

REACTIONS (8)
  - Hyperhidrosis [Recovering/Resolving]
  - Weight increased [Recovering/Resolving]
  - Food craving [Recovering/Resolving]
  - Performance status decreased [Recovered/Resolved]
  - Dyspnoea [Recovering/Resolving]
  - Dizziness [Recovering/Resolving]
  - Night sweats [Recovering/Resolving]
  - Hypotonia [Recovered/Resolved]

NARRATIVE: CASE EVENT DATE: 20210810
